FAERS Safety Report 24121197 (Version 6)
Quarter: 2024Q4

REPORT INFORMATION
  Report Type: Spontaneous
  Country: CZ (occurrence: CZ)
  Receive Date: 20240722
  Receipt Date: 20241125
  Transmission Date: 20250115
  Serious: Yes (Other)
  Sender: IPSEN BIOPHARMACEUTICALS, INC.
  Company Number: None

PATIENT
  Age: 33 Year
  Sex: Female
  Weight: 52 kg

DRUGS (6)
  1. DYSPORT [Suspect]
     Active Substance: ABOBOTULINUMTOXINA
     Indication: Skin cosmetic procedure
     Dosage: 1ST APPLICATION - TO THE FOREHEAD
     Route: 058
     Dates: start: 20231120, end: 20231120
  2. DYSPORT [Suspect]
     Active Substance: ABOBOTULINUMTOXINA
     Indication: Botulinum toxin injection
     Dosage: 2ND APPLICATION - TO THE FOREHEAD
     Route: 058
     Dates: start: 20231219, end: 20231219
  3. DYSPORT [Suspect]
     Active Substance: ABOBOTULINUMTOXINA
     Indication: Skin wrinkling
  4. DYSPORT [Suspect]
     Active Substance: ABOBOTULINUMTOXINA
     Indication: Off label use
  5. MAGNESIUM CARBONATE\MAGNESIUM OXIDE [Concomitant]
     Active Substance: MAGNESIUM CARBONATE\MAGNESIUM OXIDE
  6. DROSPIRENONE [Concomitant]
     Active Substance: DROSPIRENONE
     Indication: Contraception

REACTIONS (39)
  - Injection site paraesthesia [Not Recovered/Not Resolved]
  - Eyelid oedema [Not Recovered/Not Resolved]
  - Eyelid ptosis [Not Recovered/Not Resolved]
  - Panic attack [Recovered/Resolved]
  - Brow ptosis [Not Recovered/Not Resolved]
  - Vision blurred [Recovered/Resolved]
  - Paraesthesia [Recovered/Resolved]
  - Dry eye [Not Recovered/Not Resolved]
  - Tic [Not Recovered/Not Resolved]
  - Anxiety [Recovered/Resolved]
  - Chills [Recovered/Resolved]
  - Head deformity [Recovered/Resolved]
  - Migraine [Recovered/Resolved]
  - Muscular weakness [Not Recovered/Not Resolved]
  - Spinal pain [Recovered/Resolved]
  - Dry mouth [Recovered/Resolved]
  - Eczema [Recovered/Resolved]
  - Formication [Recovered/Resolved]
  - Skin tightness [Not Recovered/Not Resolved]
  - Constipation [Recovered/Resolved]
  - Skin irritation [Not Recovered/Not Resolved]
  - Insomnia [Recovered/Resolved]
  - Night sweats [Recovered/Resolved]
  - Dyspnoea [Recovered/Resolved]
  - Headache [Recovered/Resolved]
  - Muscle twitching [Not Recovered/Not Resolved]
  - Weight decreased [Recovered/Resolved]
  - Dyspnoea [Recovered/Resolved]
  - Diplopia [Recovered/Resolved]
  - Musculoskeletal stiffness [Recovered/Resolved]
  - Fatigue [Recovered/Resolved]
  - Eye irritation [Not Recovered/Not Resolved]
  - Facial pain [Not Recovered/Not Resolved]
  - Influenza like illness [Recovered/Resolved]
  - Facial paralysis [Recovered/Resolved]
  - Heart rate increased [Recovered/Resolved]
  - Off label use [Unknown]
  - Off label use [Unknown]
  - Off label use [Unknown]

NARRATIVE: CASE EVENT DATE: 20231101
